FAERS Safety Report 23476175 (Version 1)
Quarter: 2024Q1

REPORT INFORMATION
  Report Type: Report from Study
  Country: JP (occurrence: JP)
  Receive Date: 20240204
  Receipt Date: 20240204
  Transmission Date: 20240410
  Serious: No
  Sender: FDA-Public Use
  Company Number: JP-TAKEDA-2023TJP003042

PATIENT
  Age: 64 Year
  Sex: Male
  Weight: 90 kg

DRUGS (2)
  1. CABOMETYX [Suspect]
     Active Substance: CABOZANTINIB S-MALATE
     Indication: Renal cell carcinoma stage IV
     Dosage: 40 MG, QD
     Route: 048
     Dates: start: 20211206, end: 20220201
  2. URSO [Concomitant]
     Active Substance: URSODIOL
     Dosage: UNK
     Route: 048
     Dates: start: 20211222

REACTIONS (1)
  - Hepatic function abnormal [Recovering/Resolving]

NARRATIVE: CASE EVENT DATE: 20220202
